FAERS Safety Report 6067383-0 (Version None)
Quarter: 2009Q1

REPORT INFORMATION
  Report Type: 
  Country: None (occurrence: None)
  Receive Date: 20090204
  Receipt Date: 20090204
  Transmission Date: 20090719
  Serious: Yes (Hospitalization)
  Sender: FDA-Public Use
  Company Number: None

PATIENT
  Age: 56 Year
  Sex: Male

DRUGS (4)
  1. ENOXAPARIN SODIUM [Suspect]
     Indication: ATRIAL FIBRILLATION
     Dosage: 150 MG MG BID SQ
     Route: 058
     Dates: start: 20090119, end: 20090128
  2. ENOXAPARIN SODIUM [Suspect]
     Indication: PULMONARY EMBOLISM
     Dosage: 150 MG MG BID SQ
     Route: 058
     Dates: start: 20090119, end: 20090128
  3. WARFARIN SODIUM [Suspect]
     Indication: ATRIAL FIBRILLATION
     Dosage: MG EVERYDAY PO
     Route: 048
     Dates: start: 20090119
  4. WARFARIN SODIUM [Suspect]
     Indication: PULMONARY EMBOLISM
     Dosage: MG EVERYDAY PO
     Route: 048
     Dates: start: 20090119

REACTIONS (2)
  - HAEMATOMA [None]
  - HAEMORRHAGE [None]
